FAERS Safety Report 8322303-0 (Version None)
Quarter: 2012Q2

REPORT INFORMATION
  Report Type: 
  Country: None (occurrence: None)
  Receive Date: 20120430
  Receipt Date: 20120420
  Transmission Date: 20120825
  Serious: Yes (Hospitalization, Other)
  Sender: FDA-Public Use
  Company Number: PHHY2011JP60652

PATIENT
  Age: 65 Year
  Sex: Male

DRUGS (1)
  1. NEORAL [Suspect]
     Indication: RENAL TRANSPLANT
     Dosage: 300 MG, UNK
     Route: 048
     Dates: start: 20101111, end: 20101123

REACTIONS (2)
  - LIVER DISORDER [None]
  - COMPLICATIONS OF TRANSPLANTED KIDNEY [None]
